FAERS Safety Report 19325778 (Version 2)
Quarter: 2021Q3

REPORT INFORMATION
  Report Type: Spontaneous
  Country: US (occurrence: US)
  Receive Date: 20210528
  Receipt Date: 20210701
  Transmission Date: 20211014
  Serious: Yes (Other)
  Sender: FDA-Public Use
  Company Number: US-BAYER-2021-148786

PATIENT
  Age: 21 Year
  Sex: Female
  Weight: 44.9 kg

DRUGS (1)
  1. MIRENA [Suspect]
     Active Substance: LEVONORGESTREL
     Indication: CONTRACEPTION
     Dosage: 20  ?G PER DAY, CONTINUOUSLY
     Route: 015
     Dates: start: 20210318, end: 20210423

REACTIONS (3)
  - Genital haemorrhage [None]
  - Abdominal pain [None]
  - Embedded device [Recovered/Resolved with Sequelae]

NARRATIVE: CASE EVENT DATE: 20210423
